FAERS Safety Report 5282465-9 (Version None)
Quarter: 2007Q1

REPORT INFORMATION
  Report Type: 
  Country: None (occurrence: None)
  Receive Date: 20070326
  Receipt Date: 20070313
  Transmission Date: 20070707
  Serious: Yes (Hospitalization)
  Sender: FDA-Public Use
  Company Number: 238235

PATIENT
  Age: 60 Year
  Sex: 0

DRUGS (9)
  1. RITUXAN [Suspect]
     Indication: RHEUMATOID ARTHRITIS
     Dosage: 1000 MG, INTRAVENOUS
     Route: 042
     Dates: start: 20070103
  2. FOLIC ACID [Concomitant]
  3. METHOTREXATE [Concomitant]
  4. PRILOSEC [Concomitant]
  5. ZYRTEC [Concomitant]
  6. ACTONEL [Concomitant]
  7. LORTAB [Concomitant]
  8. ULTRAM [Concomitant]
  9. CELEBREX [Concomitant]

REACTIONS (1)
  - CHOLELITHIASIS [None]
